FAERS Safety Report 14478562 (Version 1)
Quarter: 2018Q1

REPORT INFORMATION
  Report Type: Spontaneous
  Country: GB (occurrence: GB)
  Receive Date: 20180202
  Receipt Date: 20180202
  Transmission Date: 20180509
  Serious: Yes (Other)
  Sender: FDA-Public Use
  Company Number: GB-LUPIN PHARMACEUTICALS INC.-2018-00485

PATIENT
  Age: 53 Year
  Sex: Male

DRUGS (9)
  1. RIVASTIGMINE. [Suspect]
     Active Substance: RIVASTIGMINE
     Dosage: UNK
     Route: 062
     Dates: start: 201308
  2. GALANTAMINE. [Concomitant]
     Active Substance: GALANTAMINE
     Dosage: UNK
     Route: 065
  3. DONEPEZIL. [Suspect]
     Active Substance: DONEPEZIL
     Indication: MAJOR DEPRESSION
     Dosage: 10 MG, QD
     Route: 065
     Dates: start: 201305
  4. GALANTAMINE. [Concomitant]
     Active Substance: GALANTAMINE
     Indication: MAJOR DEPRESSION
     Dosage: 4 MG, QD
     Route: 065
     Dates: start: 201401
  5. CHLORPROMAZINE. [Concomitant]
     Active Substance: CHLORPROMAZINE
     Indication: MAJOR DEPRESSION
     Dosage: UNK
     Route: 065
  6. RIVASTIGMINE. [Suspect]
     Active Substance: RIVASTIGMINE
     Dosage: UNK
     Route: 062
     Dates: start: 201308
  7. MEMANTINE. [Suspect]
     Active Substance: MEMANTINE
     Indication: MAJOR DEPRESSION
     Dosage: UNK UNK, QD (UPTO 20 MG)
     Route: 065
  8. RIVASTIGMINE. [Suspect]
     Active Substance: RIVASTIGMINE
     Indication: MAJOR DEPRESSION
     Dosage: 4.2 MG, QD
     Route: 062
     Dates: start: 201301
  9. GALANTAMINE. [Concomitant]
     Active Substance: GALANTAMINE
     Dosage: 8 MG, QD
     Route: 065

REACTIONS (8)
  - Headache [Unknown]
  - Hallucination [Unknown]
  - Nausea [Unknown]
  - Therapeutic response decreased [Unknown]
  - Depressed mood [Unknown]
  - Salivary hypersecretion [Unknown]
  - Oral pain [Unknown]
  - Pneumonia aspiration [Unknown]
